FAERS Safety Report 14355277 (Version 1)
Quarter: 2018Q1

REPORT INFORMATION
  Report Type: Spontaneous
  Country: US (occurrence: US)
  Receive Date: 20180104
  Receipt Date: 20180104
  Transmission Date: 20180509
  Serious: Yes (Other)
  Sender: FDA-Public Use
  Company Number: None

PATIENT

DRUGS (1)
  1. CIPRO [Suspect]
     Active Substance: CIPROFLOXACIN HYDROCHLORIDE

REACTIONS (7)
  - Feeling hot [None]
  - Disorientation [None]
  - Musculoskeletal pain [None]
  - Nervous system disorder [None]
  - Tendon disorder [None]
  - Abdominal pain upper [None]
  - Tendon pain [None]

NARRATIVE: CASE EVENT DATE: 20171115
